FAERS Safety Report 14181693 (Version 3)
Quarter: 2019Q3

REPORT INFORMATION
  Report Type: Report from Study
  Country: None (occurrence: US)
  Receive Date: 20171113
  Receipt Date: 20190822
  Transmission Date: 20191004
  Serious: Yes (Hospitalization, Other)
  Sender: FDA-Public Use
  Company Number: US-ABBVIE-17K-163-2154556-00

PATIENT
  Sex: Male

DRUGS (1)
  1. HUMIRA [Suspect]
     Active Substance: ADALIMUMAB
     Indication: PRODUCT USED FOR UNKNOWN INDICATION
     Route: 058

REACTIONS (13)
  - Limb mass [Unknown]
  - Cardiac failure congestive [Unknown]
  - Oedema peripheral [Unknown]
  - Exostosis [Unknown]
  - Eye infection fungal [Unknown]
  - Retinal vascular disorder [Unknown]
  - Blindness unilateral [Not Recovered/Not Resolved]
  - Prostate cancer [Unknown]
  - Abdominal hernia [Unknown]
  - Foot deformity [Unknown]
  - Surgical failure [Unknown]
  - Anaemia [Unknown]
  - Hypertension [Unknown]
